FAERS Safety Report 5228852-6 (Version None)
Quarter: 2007Q1

REPORT INFORMATION
  Report Type: 
  Country: None (occurrence: None)
  Receive Date: 20070205
  Receipt Date: 20070126
  Transmission Date: 20070707
  Serious: Yes (Hospitalization)
  Sender: FDA-Public Use
  Company Number: US-ROCHE-463802

PATIENT
  Age: 68 Year
  Sex: Female
  Weight: 59.5 kg

DRUGS (20)
  1. CAPECITABINE [Suspect]
     Dosage: 1000 MG/M2 TWICE-DAILY, DAYS 1-15 OF EACH 3-WEEK CYCLE. GIVEN FROM THE EVENING OF DAY 1, THROUGH TO+
     Route: 048
     Dates: start: 20060117, end: 20060922
  2. BEVACIZUMAB [Suspect]
     Dosage: 15 MG/KG ON DAY 1 OF 21 DAY CYCLE AS PER PROTOCOL.
     Route: 042
     Dates: start: 20060117, end: 20060922
  3. DEXAMETHASONE [Concomitant]
  4. DULCOLAX [Concomitant]
  5. REGLAN [Concomitant]
  6. AMBIEN [Concomitant]
  7. PROTONIX [Concomitant]
  8. SENOKOT [Concomitant]
  9. OXYCONTIN [Concomitant]
  10. CORGARD [Concomitant]
  11. DIGOXIN [Concomitant]
  12. LASIX [Concomitant]
  13. GLIPIZIDE [Concomitant]
  14. ACTIGALL [Concomitant]
  15. CENTRUM [Concomitant]
  16. PRILOSEC [Concomitant]
     Dates: start: 20060321
  17. DIOVAN [Concomitant]
     Dates: start: 20060410
  18. NORVASC [Concomitant]
  19. UNASYN [Concomitant]
     Dates: start: 20060915
  20. MORPHINE [Concomitant]
     Dates: start: 20060915

REACTIONS (1)
  - PERIRECTAL ABSCESS [None]
